FAERS Safety Report 5175470-4 (Version None)
Quarter: 2006Q4

REPORT INFORMATION
  Report Type: 
  Country: None (occurrence: None)
  Receive Date: 20061212
  Receipt Date: 20061212
  Transmission Date: 20070319
  Serious: Yes (Other)
  Sender: FDA-Public Use
  Company Number: None

PATIENT
  Sex: Female
  Weight: 81.6475 kg

DRUGS (2)
  1. CELEXA [Suspect]
     Indication: DEPRESSION
     Dosage: 60 MG DAILY PO
     Route: 048
     Dates: start: 20060615, end: 20061110
  2. ZOLOFT [Suspect]
     Indication: DEPRESSION
     Dosage: 50 MG DAILY PO
     Route: 048
     Dates: start: 19950403, end: 20061127

REACTIONS (7)
  - AGITATION [None]
  - DIZZINESS [None]
  - HEART RATE IRREGULAR [None]
  - HYPOAESTHESIA ORAL [None]
  - NAUSEA [None]
  - NERVOUSNESS [None]
  - VERTIGO [None]
